FAERS Safety Report 9840828 (Version 1)
Quarter: 2013Q4

REPORT INFORMATION
  Report Type: Spontaneous
  Country: US (occurrence: None)
  Receive Date: 20131211
  Receipt Date: 20131211
  Transmission Date: 20140711
  Serious: Yes (Hospitalization)
  Sender: FDA-Public Use
  Company Number: SPV1-2012-01219

PATIENT
  Age: 4 Year
  Sex: Female

DRUGS (2)
  1. VYVANSE (LISEXAMFETAMINE DIMESYLATE) CAPSULE [Suspect]
  2. LEXAPRO(ESCITALOPRAM OXALATE) [Concomitant]

REACTIONS (5)
  - Agitation [None]
  - Restlessness [None]
  - No therapeutic response [None]
  - Tachycardia [None]
  - Vomiting [None]
